FAERS Safety Report 24672950 (Version 1)
Quarter: 2024Q4

REPORT INFORMATION
  Report Type: Report from Study
  Country: US (occurrence: US)
  Receive Date: 20241128
  Receipt Date: 20241128
  Transmission Date: 20250114
  Serious: Yes (Death, Other)
  Sender: ACADIA PHARMACEUTICALS
  Company Number: US-ACADIA PHARMACEUTICALS INC.-ACA-2024-PIM-007460

PATIENT
  Age: 77 Year
  Sex: Male

DRUGS (16)
  1. NUPLAZID [Suspect]
     Active Substance: PIMAVANSERIN TARTRATE
     Indication: Parkinson^s disease
     Dosage: 34 MILLIGRAM, QD
     Route: 048
     Dates: start: 20220916, end: 20241105
  2. ASPIRIN [Concomitant]
     Active Substance: ASPIRIN
     Dosage: 81 MG LOW DOSE EC
  3. CARBIDOPA\LEVODOPA [Concomitant]
     Active Substance: CARBIDOPA\LEVODOPA
     Dosage: 25-100  MG
  4. MIDODRINE [Concomitant]
     Active Substance: MIDODRINE
     Dosage: 5 MILLIGRAM
  5. RIVASTIGMINE [Concomitant]
     Active Substance: RIVASTIGMINE
     Dosage: 4.6MG/24H
  6. DIAZEPAM [Concomitant]
     Active Substance: DIAZEPAM
     Dosage: 5 MILLIGRAM
  7. ROSUVASTATIN [Concomitant]
     Active Substance: ROSUVASTATIN
     Dosage: 10 MILLIGRAM
  8. HYDROCHLOROTHIAZIDE [Concomitant]
     Active Substance: HYDROCHLOROTHIAZIDE
     Dosage: 12.5 MG
  9. BISACODYL [Concomitant]
     Active Substance: BISACODYL
     Dosage: 100 MILLIGRAM
  10. DOXYCYCLINE [Concomitant]
     Active Substance: DOXYCYCLINE
     Dosage: 100 MILLIGRAM
  11. BUDESONIDE [Concomitant]
     Active Substance: BUDESONIDE
     Dosage: 0.5 MH/2ML
  12. CEFDINIR [Concomitant]
     Active Substance: CEFDINIR
     Dosage: 300 MILLIGRAM
  13. ELIQUIS [Concomitant]
     Active Substance: APIXABAN
     Dosage: 5 MILLIGRAM
  14. LEVOFLOXACIN [Concomitant]
     Active Substance: LEVOFLOXACIN
     Dosage: 500 NMG
  15. OSELTAMIVIR [Concomitant]
     Active Substance: OSELTAMIVIR
     Dosage: 30 MILLIGRAM
  16. QUETIAPINE [Concomitant]
     Active Substance: QUETIAPINE
     Dosage: 25 MILLIGRAM

REACTIONS (2)
  - Pneumonia [Fatal]
  - Influenza [Unknown]

NARRATIVE: CASE EVENT DATE: 20241105
